FAERS Safety Report 6332219-7 (Version None)
Quarter: 2009Q3

REPORT INFORMATION
  Report Type: 
  Country: None (occurrence: None)
  Receive Date: 20090827
  Receipt Date: 20090827
  Transmission Date: 20100115
  Serious: Yes (Hospitalization)
  Sender: FDA-Public Use
  Company Number: None

PATIENT
  Age: 80 Year
  Sex: Male
  Weight: 74.1 kg

DRUGS (1)
  1. ATENOLOL [Suspect]
     Indication: HYPERTENSION
     Dosage: 25 MG EVERY DAY PO
     Route: 048
     Dates: start: 20070625, end: 20090521

REACTIONS (3)
  - BRADYCARDIA [None]
  - DIZZINESS [None]
  - GAIT DISTURBANCE [None]
